FAERS Safety Report 4360765-4 (Version None)
Quarter: 2004Q2

REPORT INFORMATION
  Report Type: 
  Country: None (occurrence: None)
  Receive Date: 20040519
  Receipt Date: 20040519
  Transmission Date: 20050107
  Serious: Yes (Other)
  Sender: FDA-Public Use
  Company Number: None

PATIENT
  Age: 18 Year
  Sex: Male

DRUGS (2)
  1. CODEINE [Suspect]
     Indication: PAIN
     Dosage: 30 MG PO PRN
     Route: 048
     Dates: start: 20031222
  2. FLURBIPROFEN [Concomitant]

REACTIONS (3)
  - ERYTHEMA [None]
  - RASH [None]
  - SCLERAL HYPERAEMIA [None]
